FAERS Safety Report 25957533 (Version 1)
Quarter: 2025Q4

REPORT INFORMATION
  Report Type: Report from Study
  Country: US (occurrence: US)
  Receive Date: 20251024
  Receipt Date: 20251024
  Transmission Date: 20260117
  Serious: Yes (Hospitalization)
  Sender: pharmaAND
  Company Number: US-Pharmaand-2025001083

PATIENT
  Sex: Male

DRUGS (1)
  1. RUBRACA [Suspect]
     Active Substance: RUCAPARIB CAMSYLATE
     Indication: Prostate cancer
     Dosage: 1 TABLET TWO TIMES A DAY
     Route: 050

REACTIONS (1)
  - Hospitalisation [Not Recovered/Not Resolved]
